FAERS Safety Report 5097351-7 (Version None)
Quarter: 2006Q3

REPORT INFORMATION
  Report Type: 
  Country: None (occurrence: None)
  Receive Date: 20060901
  Receipt Date: 20060818
  Transmission Date: 20061208
  Serious: Yes (Hospitalization, Other)
  Sender: FDA-Public Use
  Company Number: 2006S1006702

PATIENT
  Age: 26 Year
  Sex: Female
  Weight: 55.9739 kg

DRUGS (3)
  1. AMITRIPTYLINE HCL [Suspect]
     Indication: MIGRAINE PROPHYLAXIS
     Dosage: 100 MG; UNKNOWN; PO
     Route: 048
     Dates: start: 20041020, end: 20041031
  2. PANNAZ / 01056401/ (CON.) [Concomitant]
  3. IBUPROFEN (CON.) [Concomitant]

REACTIONS (1)
  - NEPHROLITHIASIS [None]
